FAERS Safety Report 9817919 (Version 1)
Quarter: 2013Q4

REPORT INFORMATION
  Report Type: Spontaneous
  Country: US (occurrence: None)
  Receive Date: 20131223
  Receipt Date: 20131223
  Transmission Date: 20140711
  Serious: No
  Sender: FDA-Public Use
  Company Number: 218544

PATIENT
  Age: 63 Year
  Sex: Female

DRUGS (1)
  1. PICATO [Suspect]
     Dosage: 1 IN 1 D TOPICAL
     Dates: start: 20120718, end: 20120729

REACTIONS (6)
  - Pruritus [None]
  - Skin exfoliation [None]
  - Erythema [None]
  - Oropharyngeal pain [None]
  - Application site exfoliation [None]
  - Skin tightness [None]
